FAERS Safety Report 10521988 (Version 2)
Quarter: 2014Q4

REPORT INFORMATION
  Report Type: Spontaneous
  Country: US (occurrence: None)
  Receive Date: 20141014
  Receipt Date: 20141110
  Transmission Date: 20150528
  Serious: Yes (Congenital Anomaly)
  Sender: FDA-Public Use
  Company Number: 2014HINOTH0926

PATIENT
  Age: 37 Week
  Sex: Male

DRUGS (5)
  1. STAVUDINE (STAVUDINE) [Suspect]
     Active Substance: STAVUDINE
     Indication: HIV INFECTION
     Route: 064
     Dates: start: 20050501, end: 20140408
  2. NEVIRAPINE (NEVIRAPINE) [Suspect]
     Active Substance: NEVIRAPINE
     Indication: HIV INFECTION
     Route: 064
     Dates: start: 20050501, end: 20140408
  3. KALETRA [Suspect]
     Active Substance: LOPINAVIR\RITONAVIR
     Indication: HIV INFECTION
     Dosage: 8, TRANSPLACENTAL
     Route: 064
     Dates: start: 20140408
  4. LAMIVUDINE (LAMIVUDINE) [Suspect]
     Active Substance: LAMIVUDINE
     Indication: HIV INFECTION
     Route: 064
     Dates: start: 20050501
  5. TENOFOVIR [Suspect]
     Active Substance: TENOFOVIR
     Indication: HIV INFECTION
     Route: 064
     Dates: start: 20140408

REACTIONS (12)
  - Pericardial effusion [None]
  - Placental insufficiency [None]
  - Nasal disorder [None]
  - Congenital foot malformation [None]
  - Low set ears [None]
  - Placental disorder [None]
  - Trisomy 21 [None]
  - Maternal drugs affecting foetus [None]
  - Oligohydramnios [None]
  - Protrusion tongue [None]
  - Premature baby [None]
  - Placental infarction [None]
